FAERS Safety Report 9502410 (Version 3)
Quarter: 2013Q3

REPORT INFORMATION
  Report Type: Spontaneous
  Country: US (occurrence: US)
  Receive Date: 20130906
  Receipt Date: 20130926
  Transmission Date: 20140515
  Serious: Yes (Hospitalization, Other)
  Sender: FDA-Public Use
  Company Number: US-009507513-1309USA000776

PATIENT
  Age: 56 Year
  Sex: Female

DRUGS (1)
  1. ISENTRESS [Suspect]
     Indication: HIV INFECTION
     Dosage: 400 MG, BID
     Route: 048
     Dates: start: 2007

REACTIONS (2)
  - Gastric cancer [Not Recovered/Not Resolved]
  - Dysphagia [Not Recovered/Not Resolved]
